FAERS Safety Report 10015258 (Version 1)
Quarter: 2014Q1

REPORT INFORMATION
  Report Type: Spontaneous
  Country: US (occurrence: US)
  Receive Date: 20140317
  Receipt Date: 20140317
  Transmission Date: 20141002
  Serious: No
  Sender: FDA-Public Use
  Company Number: US-009507513-1403USA003190

PATIENT
  Age: 23 Year
  Sex: Female
  Weight: 83.9 kg

DRUGS (2)
  1. NEXPLANON [Suspect]
     Indication: CONTRACEPTION
     Dosage: UNK
     Route: 059
     Dates: start: 20140227
  2. ANALGESIC (UNSPECIFIED) [Concomitant]
     Indication: BACK PAIN
     Dosage: UNK

REACTIONS (2)
  - Implant site rash [Recovering/Resolving]
  - Scab [Recovering/Resolving]
